FAERS Safety Report 12249875 (Version 1)
Quarter: 2016Q2

REPORT INFORMATION
  Report Type: Spontaneous
  Country: FR (occurrence: FR)
  Receive Date: 20160408
  Receipt Date: 20160408
  Transmission Date: 20160815
  Serious: Yes (Other)
  Sender: FDA-Public Use
  Company Number: FR-JNJFOC-20160405712

PATIENT
  Age: 74 Year
  Sex: Female

DRUGS (3)
  1. ORENCIA [Suspect]
     Active Substance: ABATACEPT
     Indication: RHEUMATOID ARTHRITIS
     Route: 058
     Dates: start: 201110, end: 201404
  2. ORENCIA [Suspect]
     Active Substance: ABATACEPT
     Indication: RHEUMATOID ARTHRITIS
     Dosage: DOSE: 17.8571 UG (125 UG, WEEKLY)
     Route: 058
     Dates: start: 201404, end: 201602
  3. REMICADE [Suspect]
     Active Substance: INFLIXIMAB
     Indication: RHEUMATOID ARTHRITIS
     Route: 042
     Dates: start: 201006, end: 201103

REACTIONS (1)
  - Superficial spreading melanoma stage unspecified [Recovered/Resolved]

NARRATIVE: CASE EVENT DATE: 20160215
